FAERS Safety Report 9257382 (Version 1)
Quarter: 2013Q1

REPORT INFORMATION
  Report Type: Spontaneous
  Country: US (occurrence: None)
  Receive Date: 20121212
  Receipt Date: 20121212
  Transmission Date: 20140127
  Serious: No
  Sender: FDA-Public Use
  Company Number: 1208USA002385

PATIENT
  Age: 61 Year
  Sex: Female
  Weight: 83.92 kg

DRUGS (9)
  1. VICTRELIS [Suspect]
     Indication: HEPATITIS C
     Dosage: 800MG, TID, 4 CAPSULES TAKEN WITH FOOD, ORAL
     Route: 048
     Dates: start: 20120516
  2. REBETOL [Suspect]
     Indication: HEPATITIS C
     Dosage: UNK
  3. PEGASYS (PEGINTERFERON ALFA-2B) [Concomitant]
  4. METHADONE HCL (METHADONE HYDROCHLORIDE) 10MG [Concomitant]
  5. PROVENTIL (ALBUTEROL SULFATE) INHALATION POWDER [Concomitant]
  6. CLONAZEPAM (CLONAZEPAM) TABLET 2MG [Concomitant]
  7. CLONIDINE (CLONIDINE) TABLET, 0.1MG [Concomitant]
  8. HYDROCORTISONE (HYDROCORTISONE) CREAM 1% [Concomitant]
  9. TYLENOL (ACETAMINOPHEN) TABLET 650MG [Concomitant]

REACTIONS (3)
  - Hallucinations, mixed [None]
  - Poor quality sleep [None]
  - Anaemia [None]
